FAERS Safety Report 5366982-9 (Version None)
Quarter: 2007Q2

REPORT INFORMATION
  Report Type: 
  Country: None (occurrence: None)
  Receive Date: 20070619
  Receipt Date: 20070608
  Transmission Date: 20071010
  Serious: Yes (Disabling)
  Sender: FDA-Public Use
  Company Number: OSCN-NO-0706S-0254

PATIENT
  Sex: Female

DRUGS (1)
  1. OMNISCAN [Suspect]
     Indication: SHUNT OCCLUSION
     Dosage: 20 ML, SINGLE DOSE, I.V.
     Route: 042
     Dates: start: 20070101, end: 20070101

REACTIONS (2)
  - NEPHROGENIC FIBROSING DERMOPATHY [None]
  - SHUNT OCCLUSION [None]
